FAERS Safety Report 19771104 (Version 1)
Quarter: 2021Q3

REPORT INFORMATION
  Report Type: Spontaneous
  Country: US (occurrence: US)
  Receive Date: 20210901
  Receipt Date: 20210901
  Transmission Date: 20211014
  Serious: Yes (Hospitalization, Other)
  Sender: FDA-Public Use
  Company Number: US-APNAR-000109

PATIENT
  Sex: Female

DRUGS (25)
  1. FLUOXETINE [Suspect]
     Active Substance: FLUOXETINE HYDROCHLORIDE
     Indication: PRODUCT USED FOR UNKNOWN INDICATION
  2. AZELASTINE/AZELASTINE HYDROCHLORIDE [Concomitant]
     Dosage: EVERY 72 HOURS
  3. TRULICITY [Concomitant]
     Active Substance: DULAGLUTIDE
     Dosage: 1.5 MG / 0.5 ML ONCE A WEEK
     Dates: start: 20190307
  4. MAGNESIUM CITRATE. [Concomitant]
     Active Substance: MAGNESIUM CITRATE
  5. IRON [Suspect]
     Active Substance: IRON
     Indication: PRODUCT USED FOR UNKNOWN INDICATION
  6. TORASEMIDE [Concomitant]
     Active Substance: TORSEMIDE
     Dosage: ONCE DAILY
  7. PROBIOTIC [Concomitant]
     Active Substance: PROBIOTICS NOS
  8. L?THEANINE [Concomitant]
     Active Substance: DIETARY SUPPLEMENT
     Dosage: ONCE DAILY
  9. IRON [Concomitant]
     Active Substance: IRON
     Indication: IRON DEFICIENCY
     Dosage: ONCE DAILY
     Dates: start: 20140404
  10. COSENTYX [Concomitant]
     Active Substance: SECUKINUMAB
     Indication: PSORIASIS
     Dosage: STRENGTH: 300 MG, Q4W
     Dates: start: 20190401
  11. INSULIN ASPART [Concomitant]
     Active Substance: INSULIN ASPART
     Dosage: 100 UNITS/ML, 2?3 UNITS WITH DINNER
  12. LANTUS [Concomitant]
     Active Substance: INSULIN GLARGINE
     Dosage: 100 UNITS/ML, 18 UNITS SQ HS
  13. LEVOTHYROXINE. [Concomitant]
     Active Substance: LEVOTHYROXINE
     Dosage: ONCE DAILY
  14. ASCORBIC ACID. [Concomitant]
     Active Substance: ASCORBIC ACID
  15. LORATADINE. [Concomitant]
     Active Substance: LORATADINE
     Indication: HYPERSENSITIVITY
     Dosage: ONCE DAILY
     Dates: start: 20190811
  16. METOPROLOL. [Concomitant]
     Active Substance: METOPROLOL
     Dosage: TWICE A DAY
  17. NASACORT [Concomitant]
     Active Substance: TRIAMCINOLONE ACETONIDE
  18. COLECALCIFEROL [Concomitant]
     Active Substance: CHOLECALCIFEROL
     Indication: CALCIUM DEFICIENCY
     Dosage: ONCE DAILY
     Dates: start: 20140101
  19. FISH OIL [Concomitant]
     Active Substance: FISH OIL
  20. CALCIPOTRIOL AND BETAMETHASONE [Concomitant]
     Active Substance: BETAMETHASONE\CALCIPOTRIENE
     Indication: PSORIASIS
     Dosage: ONCE DAILY
  21. ATORVASTATIN [Concomitant]
     Active Substance: ATORVASTATIN
     Indication: BLOOD CHOLESTEROL
     Dosage: ONCE DAILY
     Dates: start: 20160609
  22. METFORMIN [Concomitant]
     Active Substance: METFORMIN HYDROCHLORIDE
     Dosage: TWICE A DAY
  23. CICLOPIROX. [Concomitant]
     Active Substance: CICLOPIROX
  24. TRIAMCINOLONE [Concomitant]
     Active Substance: TRIAMCINOLONE
     Dosage: TWICE A DAY
  25. RIVAROXABAN [Concomitant]
     Active Substance: RIVAROXABAN

REACTIONS (2)
  - Complication associated with device [Recovered/Resolved with Sequelae]
  - Atrioventricular block [Recovered/Resolved]

NARRATIVE: CASE EVENT DATE: 20201021
